FAERS Safety Report 15246666 (Version 3)
Quarter: 2018Q4

REPORT INFORMATION
  Report Type: Report from Study
  Country: US (occurrence: US)
  Receive Date: 20180806
  Receipt Date: 20181218
  Transmission Date: 20190204
  Serious: No
  Sender: FDA-Public Use
  Company Number: PHEH2018US032336

PATIENT
  Age: 67 Year
  Sex: Male

DRUGS (1)
  1. GILENYA [Suspect]
     Active Substance: FINGOLIMOD HYDROCHLORIDE
     Indication: PRODUCT USED FOR UNKNOWN INDICATION
     Dosage: UNK
     Route: 065
     Dates: start: 20180407

REACTIONS (5)
  - Tenosynovitis [Unknown]
  - Skin discolouration [Unknown]
  - Fatigue [Unknown]
  - Peripheral swelling [Unknown]
  - Arthritis [Unknown]

NARRATIVE: CASE EVENT DATE: 20181201
